FAERS Safety Report 15906864 (Version 1)
Quarter: 2019Q1

REPORT INFORMATION
  Report Type: Spontaneous
  Country: US (occurrence: US)
  Receive Date: 20190110
  Receipt Date: 20190110
  Transmission Date: 20190417
  Serious: Yes (Disabling, Other)
  Sender: FDA-Public Use
  Company Number: None

PATIENT
  Age: 54 Year
  Sex: Female
  Weight: 64.86 kg

DRUGS (1)
  1. ODACTRA [Suspect]
     Active Substance: DERMATOPHAGOIDES FARINAE\DERMATOPHAGOIDES PTERONYSSINUS
     Indication: RHINITIS ALLERGIC
     Dosage: ?          OTHER DOSE:1 TABLET;?
     Route: 058
     Dates: start: 20180619, end: 20180629

REACTIONS (3)
  - Wheezing [None]
  - Chest discomfort [None]
  - Retinal artery occlusion [None]

NARRATIVE: CASE EVENT DATE: 20180619
